FAERS Safety Report 8224689-4 (Version None)
Quarter: 2012Q1

REPORT INFORMATION
  Report Type: 
  Country: None (occurrence: None)
  Receive Date: 20120321
  Receipt Date: 20120319
  Transmission Date: 20120608
  Serious: Yes (Death)
  Sender: FDA-Public Use
  Company Number: US-CELGENEUS-163-21880-12011782

PATIENT
  Sex: Female

DRUGS (19)
  1. REVLIMID [Suspect]
     Dosage: 50 MILLIGRAM
     Route: 048
     Dates: start: 20111227, end: 20111230
  2. ACYCLOVIR [Concomitant]
     Dosage: 200 MILLIGRAM
     Route: 065
  3. LACTULOSE [Concomitant]
     Dosage: 10GM/15
     Route: 065
  4. OXYCODONE HCL [Concomitant]
     Dosage: 5 MILLIGRAM
     Route: 065
  5. OSCAL 500 [Concomitant]
     Dosage: 200 D-3
     Route: 065
  6. FLUCONAZOLE [Concomitant]
     Dosage: 50 MILLIGRAM
     Route: 065
  7. LEVOFLOXACIN [Concomitant]
     Dosage: 250 MILLIGRAM
     Route: 065
  8. PROCHLORPERAZINE [Concomitant]
     Dosage: 10 MILLIGRAM
     Route: 065
  9. STOOL SOFTENER [Concomitant]
     Dosage: 100-30
     Route: 065
  10. ADVAIR DISKUS 100/50 [Concomitant]
     Dosage: 100/50
     Route: 065
  11. LEVOTHYROXINE SODIUM [Concomitant]
     Dosage: 50 MICROGRAM
     Route: 065
  12. MIRALAX [Concomitant]
     Dosage: 3350 NF
     Route: 065
  13. LODOSYN [Concomitant]
     Dosage: 25 MILLIGRAM
     Route: 065
  14. NEULASTA [Concomitant]
     Indication: NEUTROPENIA
     Dosage: 6 MILLIGRAM
     Route: 058
     Dates: start: 20111205
  15. GABAPENTIN [Concomitant]
     Dosage: 100 MILLIGRAM
     Route: 065
  16. METOPROLOL SUCCINATE [Concomitant]
     Dosage: 25 MILLIGRAM
     Route: 065
  17. NEXIUM [Concomitant]
     Dosage: 20 MILLIGRAM
     Route: 065
  18. TESSALON [Concomitant]
     Dosage: 200 MILLIGRAM
     Route: 065
  19. DECITABINE [Concomitant]
     Dosage: 35 MILLIGRAM
     Route: 041
     Dates: start: 20110830, end: 20111230

REACTIONS (2)
  - DISEASE PROGRESSION [None]
  - ACUTE MYELOID LEUKAEMIA [None]
